FAERS Safety Report 6852741-4 (Version None)
Quarter: 2010Q3

REPORT INFORMATION
  Report Type: 
  Country: None (occurrence: None)
  Receive Date: 20100717
  Receipt Date: 20071120
  Transmission Date: 20110219
  Serious: No
  Sender: FDA-Public Use
  Company Number: US-PFIZER INC-2007099703

PATIENT
  Sex: Female
  Weight: 84.09 kg

DRUGS (6)
  1. CHANTIX [Suspect]
     Indication: SMOKING CESSATION THERAPY
     Dates: start: 20071102
  2. VITAMINS [Concomitant]
     Indication: EYE DISORDER
  3. MOBIC [Concomitant]
  4. ZYRTEC [Concomitant]
  5. VALSARTAN [Concomitant]
     Indication: BLOOD PRESSURE ABNORMAL
  6. MONTELUKAST SODIUM [Concomitant]

REACTIONS (3)
  - CHROMATURIA [None]
  - CONSTIPATION [None]
  - URINE ODOUR ABNORMAL [None]
